FAERS Safety Report 20092018 (Version 2)
Quarter: 2021Q4

REPORT INFORMATION
  Report Type: Report from Study
  Country: US (occurrence: US)
  Receive Date: 20211119
  Receipt Date: 20211206
  Transmission Date: 20220303
  Serious: Yes (Other)
  Sender: FDA-Public Use
  Company Number: US-JAZZ-2021-US-020637

PATIENT
  Sex: Female

DRUGS (23)
  1. XYREM [Suspect]
     Active Substance: SODIUM OXYBATE
     Indication: Product used for unknown indication
     Dosage: 2.25 GRAM, BID
     Route: 048
     Dates: start: 201603, end: 201603
  2. XYREM [Suspect]
     Active Substance: SODIUM OXYBATE
     Dosage: DOSE ADJUSTMENT
     Route: 048
     Dates: start: 201603, end: 201604
  3. XYREM [Suspect]
     Active Substance: SODIUM OXYBATE
     Dosage: 4.5 GRAM, BID
     Route: 048
     Dates: start: 201604, end: 201707
  4. XYREM [Suspect]
     Active Substance: SODIUM OXYBATE
     Dosage: 2.25 GRAM, BID
     Route: 048
     Dates: start: 201802, end: 201802
  5. XYREM [Suspect]
     Active Substance: SODIUM OXYBATE
     Dosage: 3 GRAM, BID
     Route: 048
     Dates: start: 201802, end: 201803
  6. XYREM [Suspect]
     Active Substance: SODIUM OXYBATE
     Dosage: 4.5 GRAM, BID
     Route: 048
     Dates: start: 201805, end: 201806
  7. OMEPRAZOLE [Concomitant]
     Active Substance: OMEPRAZOLE
     Dosage: 0000
     Dates: start: 20180501
  8. ELIQUIS [Concomitant]
     Active Substance: APIXABAN
     Dosage: 0010
     Dates: start: 20180601
  9. NIACINAMIDE\PYRIDOXINE HYDROCHLORIDE\TYROSINE [Concomitant]
     Active Substance: NIACINAMIDE\PYRIDOXINE HYDROCHLORIDE\TYROSINE
     Dosage: 0000
     Dates: start: 20180501
  10. TYLENOL [Concomitant]
     Active Substance: ACETAMINOPHEN
     Dosage: 0000
     Dates: start: 20180601
  11. AMITRIPTYLINE [Concomitant]
     Active Substance: AMITRIPTYLINE
     Dosage: 0000
     Dates: start: 20210625
  12. INSULIN NOS [Concomitant]
     Active Substance: INSULIN NOS
     Dosage: 0000
     Dates: start: 20210325
  13. ENTOCORT [Concomitant]
     Active Substance: BUDESONIDE
     Dosage: 0000
     Dates: start: 20210426
  14. DEPAKOTE [Concomitant]
     Active Substance: DIVALPROEX SODIUM
     Dosage: 0000
     Dates: start: 20210105
  15. PEPCID [Concomitant]
     Active Substance: FAMOTIDINE
     Dosage: 0000
     Dates: start: 20181228
  16. FERROUS SULFATE [Concomitant]
     Active Substance: FERROUS SULFATE
     Dosage: 0000
     Dates: start: 20210302
  17. GABAPENTIN [Concomitant]
     Active Substance: GABAPENTIN
     Dosage: 0000
     Dates: start: 20210702
  18. REGLAN [Concomitant]
     Active Substance: METOCLOPRAMIDE HYDROCHLORIDE
     Dosage: 0000
     Dates: start: 20200505
  19. OMEPRAZOLE [Concomitant]
     Active Substance: OMEPRAZOLE
     Dosage: 0000
     Dates: start: 20210702
  20. ZOFRAN [Concomitant]
     Active Substance: ONDANSETRON HYDROCHLORIDE
     Dosage: 0000
     Dates: start: 20210909
  21. PRIMIDONE [Concomitant]
     Active Substance: PRIMIDONE
     Dosage: 0000
     Dates: start: 20210805
  22. NURTEC ODT [Concomitant]
     Active Substance: RIMEGEPANT SULFATE
     Dosage: 0000
     Dates: start: 20201016
  23. SENOKOT [Concomitant]
     Active Substance: SENNOSIDES
     Dosage: 0000
     Dates: start: 20211025

REACTIONS (1)
  - No adverse event [Recovering/Resolving]
